FAERS Safety Report 5946552-1 (Version None)
Quarter: 2008Q4

REPORT INFORMATION
  Report Type: 
  Country: None (occurrence: None)
  Receive Date: 20081110
  Receipt Date: 20081031
  Transmission Date: 20090506
  Serious: Yes (Other)
  Sender: FDA-Public Use
  Company Number: B0545496A

PATIENT
  Sex: Male

DRUGS (2)
  1. TRIZIVIR [Suspect]
     Indication: HIV INFECTION
     Dates: start: 20060609, end: 20060916
  2. BACTRIM [Concomitant]
     Dates: start: 20060609

REACTIONS (1)
  - HAEMATOTOXICITY [None]
